FAERS Safety Report 9222215 (Version 4)
Quarter: 2013Q2

REPORT INFORMATION
  Report Type: Report from Study
  Country: BR (occurrence: BR)
  Receive Date: 20130410
  Receipt Date: 20130607
  Transmission Date: 20140414
  Serious: Yes (Hospitalization, Other)
  Sender: FDA-Public Use
  Company Number: PHHY2013BR033514

PATIENT
  Sex: Male

DRUGS (9)
  1. DIOVAN HCT [Suspect]
     Indication: HYPERTENSION
     Dosage: 1 DF, (160 MG VALS AND 12.5 MG HCTZ), IN THE MORNING
     Route: 048
  2. DIOCOMB SI [Suspect]
  3. DIAMICRON [Suspect]
     Indication: DIABETES MELLITUS INADEQUATE CONTROL
     Dosage: 1 DF, (30 MG IN THE FASTING)
     Dates: end: 20130330
  4. GALVUS [Concomitant]
  5. CALCIUM BICARBONATE [Concomitant]
     Dosage: UNK UKN, UNK
  6. B COMPLEX [Concomitant]
  7. TRYPTOPHAN [Concomitant]
     Dosage: UNK UKN, UNK
  8. NORIPURUM [Concomitant]
     Dosage: UNK UKN, UNK
  9. AAS [Concomitant]
     Dosage: UNK UKN, UNK

REACTIONS (6)
  - Tremor [Unknown]
  - Vomiting [Unknown]
  - Renal impairment [Not Recovered/Not Resolved]
  - Lung infection [Recovering/Resolving]
  - Bacterial infection [Recovering/Resolving]
  - No therapeutic response [Unknown]
